FAERS Safety Report 6819138-4 (Version None)
Quarter: 2010Q2

REPORT INFORMATION
  Report Type: 
  Country: None (occurrence: None)
  Receive Date: 20100630
  Receipt Date: 20100630
  Transmission Date: 20101027
  Serious: Yes (Other)
  Sender: FDA-Public Use
  Company Number: 1022556-2010-00038

PATIENT
  Age: 50 Year
  Sex: Male

DRUGS (1)
  1. SELSUN BLUE SHAMPOO [Suspect]
     Dosage: TOPICAL, ONCE
     Route: 061

REACTIONS (2)
  - APPLICATION SITE PRURITUS [None]
  - APPLICATION SITE PUSTULES [None]
